FAERS Safety Report 5817404-2 (Version None)
Quarter: 2008Q3

REPORT INFORMATION
  Report Type: 
  Country: None (occurrence: None)
  Receive Date: 20080722
  Receipt Date: 20080424
  Transmission Date: 20090109
  Serious: No
  Sender: FDA-Public Use
  Company Number: US-BAYER-200821884NA

PATIENT
  Age: 50 Year
  Sex: Female
  Weight: 79 kg

DRUGS (18)
  1. MIRENA [Suspect]
     Indication: OVARIAN CYST
     Route: 015
     Dates: start: 20050101
  2. PREDNISONE TAB [Concomitant]
  3. RAPAMUNE [Concomitant]
     Dosage: UNIT DOSE: 1 MG
  4. VELLSEPT NOS [Concomitant]
     Dosage: UNIT DOSE: 500 MG
  5. TRICOR [Concomitant]
  6. AMOXICILLIN [Concomitant]
  7. PREMARIN [Concomitant]
     Route: 067
  8. ASPIRIN [Concomitant]
  9. CIPRO [Concomitant]
  10. M.V.I. [Concomitant]
  11. CA [Concomitant]
  12. BUSTURIN [Concomitant]
     Indication: DRUG USE FOR UNKNOWN INDICATION
  13. LAMCITAL [Concomitant]
  14. FAMVIR [Concomitant]
  15. ZYTREX [Concomitant]
  16. DETROL LA [Concomitant]
  17. CRESTOR [Concomitant]
  18. BACTRIM [Concomitant]

REACTIONS (4)
  - ABDOMINAL PAIN [None]
  - ADNEXA UTERI PAIN [None]
  - IUCD COMPLICATION [None]
  - PAIN IN EXTREMITY [None]
